FAERS Safety Report 22052179 (Version 3)
Quarter: 2023Q2

REPORT INFORMATION
  Report Type: Spontaneous
  Country: US (occurrence: US)
  Receive Date: 20230302
  Receipt Date: 20230407
  Transmission Date: 20230722
  Serious: No
  Sender: FDA-Public Use
  Company Number: US-BEH-2023155822

PATIENT
  Age: 6 Year
  Sex: Male
  Weight: 19.501 kg

DRUGS (2)
  1. HAEGARDA [Suspect]
     Active Substance: HUMAN C1-ESTERASE INHIBITOR
     Indication: Hereditary angioedema
     Dosage: 1250 INTERNATIONAL UNIT
     Route: 058
     Dates: start: 20230221
  2. HAEGARDA [Suspect]
     Active Substance: HUMAN C1-ESTERASE INHIBITOR
     Indication: Prophylaxis
     Dosage: 1250 INTERNATIONAL UNIT/KILOGRAM, BIW
     Route: 058

REACTIONS (6)
  - Infusion site mass [Unknown]
  - Burning sensation [Unknown]
  - No adverse event [Unknown]
  - Off label use [Unknown]
  - Infusion related reaction [Unknown]
  - Incorrect drug administration rate [Unknown]

NARRATIVE: CASE EVENT DATE: 20230221
